FAERS Safety Report 5478628-X (Version None)
Quarter: 2007Q4

REPORT INFORMATION
  Report Type: 
  Country: None (occurrence: None)
  Receive Date: 20071005
  Receipt Date: 20070925
  Transmission Date: 20080405
  Serious: Yes (Disabling)
  Sender: FDA-Public Use
  Company Number: NO-ELI_LILLY_AND_COMPANY-NO200709006690

PATIENT
  Sex: Male

DRUGS (3)
  1. CYMBALTA [Suspect]
     Indication: DEPRESSION
     Dosage: UNK, UNKNOWN
     Route: 048
     Dates: start: 20070501, end: 20070601
  2. ESCITALOPRAM [Concomitant]
     Dosage: UNK, UNKNOWN
     Route: 048
  3. ESCITALOPRAM [Concomitant]
     Dosage: UNK, UNKNOWN
     Route: 048
     Dates: start: 20070601

REACTIONS (2)
  - MACULOPATHY [None]
  - VISION BLURRED [None]
